FAERS Safety Report 4737191-9 (Version None)
Quarter: 2005Q3

REPORT INFORMATION
  Report Type: 
  Country: None (occurrence: None)
  Receive Date: 20050808
  Receipt Date: 20050506
  Transmission Date: 20060218
  Serious: Yes (Hospitalization, Disabling)
  Sender: FDA-Public Use
  Company Number: US-MERCK-0505USA00967

PATIENT
  Age: 53 Year
  Sex: Female
  Weight: 91 kg

DRUGS (7)
  1. VIOXX [Suspect]
     Indication: ARTHRITIS
     Route: 048
     Dates: start: 20000101, end: 20040929
  2. PROVENTIL [Concomitant]
     Indication: ASTHMA
     Route: 065
  3. DIOVAN [Concomitant]
     Indication: HYPERTENSION
     Route: 065
     Dates: start: 20020701
  4. PREVACID [Concomitant]
     Indication: GASTROOESOPHAGEAL REFLUX DISEASE
     Route: 065
  5. ZYRTEC [Concomitant]
     Indication: HYPERSENSITIVITY
     Route: 065
  6. PRILOSEC [Concomitant]
     Route: 065
  7. PROZAC [Concomitant]
     Indication: MOOD SWINGS
     Route: 065
     Dates: start: 19990101

REACTIONS (4)
  - ACUTE MYOCARDIAL INFARCTION [None]
  - ARTHROPATHY [None]
  - BACK DISORDER [None]
  - BLOOD CHOLESTEROL INCREASED [None]
